FAERS Safety Report 8474444-5 (Version None)
Quarter: 2012Q2

REPORT INFORMATION
  Report Type: 
  Country: None (occurrence: None)
  Receive Date: 20120628
  Receipt Date: 20120622
  Transmission Date: 20120825
  Serious: Yes (Other)
  Sender: FDA-Public Use
  Company Number: PHHY2011US31314

PATIENT
  Sex: Female
  Weight: 75 kg

DRUGS (3)
  1. GLEEVEC [Suspect]
     Dosage: 400 MG, QD
     Route: 048
     Dates: start: 20110215
  2. GLEEVEC [Suspect]
     Indication: GASTRIC CANCER
     Dosage: 400 MG, QD
     Route: 048
     Dates: start: 20090827, end: 20100801
  3. GLEEVEC [Suspect]
     Dosage: 400 MG, QD
     Route: 048
     Dates: start: 20090901

REACTIONS (5)
  - BONE DISORDER [None]
  - ALOPECIA [None]
  - BONE PAIN [None]
  - MALAISE [None]
  - VITILIGO [None]
